FAERS Safety Report 9893865 (Version 1)
Quarter: 2014Q1

REPORT INFORMATION
  Report Type: Spontaneous
  Country: JP (occurrence: JP)
  Receive Date: 20140213
  Receipt Date: 20140213
  Transmission Date: 20141002
  Serious: Yes (Death)
  Sender: FDA-Public Use
  Company Number: JP-ELI_LILLY_AND_COMPANY-JP201402003545

PATIENT
  Age: 75 Year
  Sex: Female

DRUGS (3)
  1. FORTEO [Suspect]
     Indication: OSTEOPOROSIS
     Dosage: UNK
     Route: 058
     Dates: start: 20140203
  2. INSULIN [Suspect]
     Indication: DIABETES MELLITUS
     Dosage: UNK
     Route: 058
  3. VOLTAREN                           /00372302/ [Concomitant]
     Dosage: UNK
     Route: 054
     Dates: start: 20140203

REACTIONS (1)
  - Death [Fatal]
